FAERS Safety Report 14273570 (Version 3)
Quarter: 2025Q4

REPORT INFORMATION
  Report Type: Spontaneous
  Country: EU (occurrence: EU)
  Receive Date: 20171211
  Receipt Date: 20251023
  Transmission Date: 20260117
  Serious: Yes (Life-Threatening, Congenital Anomaly, Other)
  Sender: OTSUKA
  Company Number: None

PATIENT
  Age: 0 Year
  Sex: Female

DRUGS (1)
  1. ABILIFY [Suspect]
     Active Substance: ARIPIPRAZOLE
     Indication: Product used for unknown indication
     Dosage: UNK(THE MOTHER HAD BEEN TAKING ABILIFY AGAINST PSYCHOSIS DURING PREGNANCY FOR MONTHS)

REACTIONS (6)
  - Neonatal respiratory failure [Recovered/Resolved]
  - Congenital pulmonary hypertension [Recovering/Resolving]
  - Neonatal asphyxia [Recovered/Resolved]
  - Drug withdrawal syndrome neonatal [Recovering/Resolving]
  - Salivary hypersecretion [Recovered/Resolved]
  - Foetal exposure during pregnancy [Recovered/Resolved]

NARRATIVE: CASE EVENT DATE: 20151223
